FAERS Safety Report 15561321 (Version 1)
Quarter: 2018Q4

REPORT INFORMATION
  Report Type: Spontaneous
  Country: US (occurrence: US)
  Receive Date: 20181023
  Receipt Date: 20181023
  Transmission Date: 20190205
  Serious: No
  Sender: FDA-Public Use
  Company Number: None

PATIENT
  Sex: Male

DRUGS (2)
  1. ENTECAVIR 0.5MG AUROBINDO PHARMA [Suspect]
     Active Substance: ENTECAVIR
     Indication: ACUTE HEPATITIS B
     Route: 048
     Dates: start: 20160923
  2. ENTECAVIR 0.5MG AUROBINDO PHARMA [Suspect]
     Active Substance: ENTECAVIR
     Indication: HEPATITIS B

REACTIONS (1)
  - Rhinitis allergic [None]
